FAERS Safety Report 4869337-6 (Version None)
Quarter: 2005Q4

REPORT INFORMATION
  Report Type: 
  Country: None (occurrence: None)
  Receive Date: 20051230
  Receipt Date: 20051228
  Transmission Date: 20060501
  Serious: Yes (Life-Threatening, Other)
  Sender: FDA-Public Use
  Company Number: PHBS2005CN19121

PATIENT
  Sex: Female

DRUGS (1)
  1. CATAFLAM [Suspect]
     Indication: PAIN IN EXTREMITY
     Dosage: 50 MG/DAY
     Route: 048
     Dates: start: 20051201

REACTIONS (3)
  - FEELING HOT [None]
  - LOSS OF CONSCIOUSNESS [None]
  - SHOCK [None]
